FAERS Safety Report 7632933 (Version 5)
Quarter: 2013Q3

REPORT INFORMATION
  Report Type: Report from Study
  Country: FR (occurrence: FR)
  Receive Date: 20101018
  Receipt Date: 20130711
  Transmission Date: 20140515
  Serious: Yes (Hospitalization)
  Sender: FDA-Public Use
  Company Number: FR-ABBOTT-10P-056-0677515-00

PATIENT
  Age: 54 Year
  Sex: Female
  Weight: 47.5 kg

DRUGS (11)
  1. KALETRA TABLETS [Suspect]
     Indication: HIV INFECTION
     Route: 048
     Dates: start: 20100430
  2. TAMIK [Concomitant]
     Indication: HYPOTENSION
     Dates: start: 20101001, end: 20101007
  3. HEXAQUINE [Concomitant]
     Indication: MUSCLE SPASMS
     Dates: start: 20090211
  4. CALCIUM [Concomitant]
     Indication: PROPHYLAXIS
     Dates: start: 20040923
  5. INEXIUM [Concomitant]
     Indication: PROPHYLAXIS
     Dates: start: 20051123
  6. INEXIUM [Concomitant]
     Indication: HAEMORRHAGE
  7. FORLAX [Concomitant]
     Indication: GENERAL SYMPTOM
     Dates: start: 20090211
  8. SPASFON [Concomitant]
     Indication: PAIN
     Dates: start: 20100215
  9. LEXOMIL [Concomitant]
     Indication: ANXIETY
     Dates: start: 20021013
  10. BONVIVA [Concomitant]
     Indication: OSTEOPOROSIS
     Dates: start: 20091127
  11. TOPAAL [Concomitant]
     Indication: GASTROOESOPHAGEAL REFLUX DISEASE
     Dates: start: 20081112

REACTIONS (3)
  - Myalgia [Recovered/Resolved]
  - General physical health deterioration [Recovered/Resolved]
  - Muscular weakness [Recovered/Resolved]
